FAERS Safety Report 21157965 (Version 9)
Quarter: 2023Q2

REPORT INFORMATION
  Report Type: Report from Study
  Country: DE (occurrence: DE)
  Receive Date: 20220801
  Receipt Date: 20230413
  Transmission Date: 20230722
  Serious: Yes (Hospitalization, Other)
  Sender: FDA-Public Use
  Company Number: DE-PFM-2022-05950

PATIENT
  Age: 33 Year
  Sex: Male
  Weight: 103 kg

DRUGS (17)
  1. ENCORAFENIB [Suspect]
     Active Substance: ENCORAFENIB
     Indication: Colorectal cancer
     Dosage: 300 MG PER DAY
     Route: 048
     Dates: start: 20220504, end: 2022
  2. ENCORAFENIB [Suspect]
     Active Substance: ENCORAFENIB
     Dosage: UNK
     Route: 048
     Dates: start: 20220716
  3. CETUXIMAB [Suspect]
     Active Substance: CETUXIMAB
     Indication: Colorectal cancer
     Dosage: 250 MG/M2, WEEKLY (LIQUID)
     Route: 042
     Dates: start: 20220504, end: 2022
  4. CETUXIMAB [Suspect]
     Active Substance: CETUXIMAB
     Dosage: UNK (LIQUID)
     Route: 042
     Dates: start: 20220720, end: 20220927
  5. NOVALGIN (METAMIZOLE SODIUM) [Concomitant]
     Active Substance: METAMIZOLE SODIUM
     Indication: Pain
     Dosage: 500 MG, PRN (AS NEEDED)
     Route: 048
     Dates: start: 20201207
  6. HYDROCORTISONE [Concomitant]
     Active Substance: HYDROCORTISONE
     Indication: Anorectal discomfort
     Dosage: UNK (AS NEEDED)
     Route: 061
     Dates: start: 20201207
  7. HYDROCORTISONE [Concomitant]
     Active Substance: HYDROCORTISONE
     Indication: Proctalgia
  8. MIRFULAN [ALLANTOIN;COD-LIVER OIL;COLECALCIFEROL;LEVOMENOL;RETINOL PAL [Concomitant]
     Indication: Skin injury
     Dosage: PRN (AS NEEDED)
     Route: 061
     Dates: start: 20201207
  9. VITAMIN C [Concomitant]
     Active Substance: ASCORBIC ACID
     Indication: Prophylaxis
     Dosage: 1000 MG, DAILY
     Route: 048
     Dates: start: 20201207
  10. IMODIUM [Concomitant]
     Active Substance: LOPERAMIDE HYDROCHLORIDE
     Indication: Diarrhoea
     Dosage: 2 MG, PRN(AS NEEDED)
     Route: 048
     Dates: start: 20201207, end: 20220507
  11. ONDANSETRON HYDROCHLORIDE [Concomitant]
     Active Substance: ONDANSETRON HYDROCHLORIDE
     Indication: Nausea
     Dosage: 4 MG, PRN (AS NEEDED)
     Route: 048
     Dates: start: 20201207
  12. ZINC GLUCONATE [Concomitant]
     Active Substance: ZINC GLUCONATE
     Indication: Prophylaxis
     Dosage: 20 MG, DAILY
     Route: 048
     Dates: start: 20201207
  13. IBUPROFEN [Concomitant]
     Active Substance: IBUPROFEN
     Indication: Pain
     Dosage: 600 MG, PRN (AS NEEDED)
     Route: 048
     Dates: start: 20201207
  14. RAMIPRIL [Concomitant]
     Active Substance: RAMIPRIL
     Indication: Hypertonia
     Dosage: 2.5 MG, DAILY
     Route: 048
     Dates: start: 20210201
  15. DEKRISTOLAN [Concomitant]
     Indication: Prophylaxis
     Dosage: 2857.14 E DAILY
     Route: 048
     Dates: start: 20211027
  16. CLEMASTINE [Concomitant]
     Active Substance: CLEMASTINE
     Indication: Prophylaxis
     Dosage: 2 MG, WEEKLY
     Route: 042
     Dates: start: 20220504
  17. MIRTAZAPINE [Concomitant]
     Active Substance: MIRTAZAPINE
     Indication: Sleep disorder
     Dosage: 7.5 MG, PRN (NEEDED ORALLY)
     Route: 048
     Dates: start: 20220817

REACTIONS (4)
  - Febrile neutropenia [Recovering/Resolving]
  - Febrile infection [Recovering/Resolving]
  - Dilatation intrahepatic duct acquired [Recovering/Resolving]
  - Dysuria [Recovered/Resolved]

NARRATIVE: CASE EVENT DATE: 20220619
